FAERS Safety Report 7684133-2 (Version None)
Quarter: 2011Q3

REPORT INFORMATION
  Report Type: 
  Country: None (occurrence: None)
  Receive Date: 20110815
  Receipt Date: 20110728
  Transmission Date: 20111222
  Serious: Yes (Hospitalization, Other)
  Sender: FDA-Public Use
  Company Number: US-BAYER-2011-067174

PATIENT
  Age: 61 Year
  Sex: Female
  Weight: 102 kg

DRUGS (6)
  1. ATROVENT [Concomitant]
  2. CLONAZEPAM [Suspect]
  3. ALKA-SELTZER PLUS COLD SPARKLING ORIGINAL [Suspect]
     Indication: SEASONAL ALLERGY
     Dosage: 2 DF, TID
     Route: 048
     Dates: start: 20090101, end: 20110101
  4. RISPERIDONE [Concomitant]
  5. ALKA-SELTZER ORIGINAL [Suspect]
     Dosage: 2 DF, TID
     Route: 048
     Dates: start: 20110101
  6. ALBUTEROL SULFATE AUTOHALER [Concomitant]

REACTIONS (3)
  - RESPIRATORY TRACT CONGESTION [None]
  - DRUG DEPENDENCE [None]
  - RECTAL HAEMORRHAGE [None]
